FAERS Safety Report 6696643-5 (Version None)
Quarter: 2010Q2

REPORT INFORMATION
  Report Type: 
  Country: None (occurrence: None)
  Receive Date: 20100426
  Receipt Date: 20090824
  Transmission Date: 20101027
  Serious: Yes (Other)
  Sender: FDA-Public Use
  Company Number: US-BAYER-200927901NA

PATIENT
  Age: 53 Year
  Sex: Male
  Weight: 96 kg

DRUGS (46)
  1. MAGNEVIST [Suspect]
     Indication: NUCLEAR MAGNETIC RESONANCE IMAGING ABDOMINAL
     Dosage: TOTAL DAILY DOSE: 18 ML
     Route: 042
     Dates: start: 20050311, end: 20050311
  2. OMNISCAN [Suspect]
     Indication: ANGIOGRAM
     Route: 042
     Dates: start: 20030521, end: 20030521
  3. OMNISCAN [Suspect]
     Route: 042
     Dates: start: 20030623, end: 20030623
  4. OMNISCAN [Suspect]
     Dates: start: 20020913, end: 20020913
  5. OMNISCAN [Suspect]
     Dates: start: 20050704, end: 20050704
  6. OMNISCAN [Suspect]
     Dosage: TOTAL DAILY DOSE: 20 ML
     Dates: start: 20030905, end: 20030905
  7. OPTIMARK [Suspect]
     Indication: NUCLEAR MAGNETIC RESONANCE IMAGING ABDOMINAL
     Dosage: TOTAL DAILY DOSE: 20 ML
     Route: 042
     Dates: start: 20040625, end: 20040625
  8. UNSPECIFIED GADOLINIUM CONTRAST AGENT [Suspect]
     Indication: NUCLEAR MAGNETIC RESONANCE IMAGING ABDOMINAL
     Route: 042
     Dates: start: 20041021, end: 20041021
  9. UNSPECIFIED GADOLINIUM CONTRAST AGENT [Suspect]
     Route: 042
     Dates: start: 20041125, end: 20041125
  10. UNSPECIFIED GADOLINIUM CONTRAST AGENT [Suspect]
     Route: 042
     Dates: start: 20050616, end: 20050616
  11. UNSPECIFIED GADOLINIUM CONTRAST AGENT [Suspect]
     Route: 042
     Dates: start: 20050705, end: 20050705
  12. UNSPECIFIED GADOLINIUM CONTRAST AGENT [Suspect]
     Route: 042
     Dates: start: 20050809, end: 20050809
  13. UNSPECIFIED GADOLINIUM CONTRAST AGENT [Suspect]
     Dates: start: 20030901, end: 20030901
  14. UNSPECIFIED GADOLINIUM CONTRAST AGENT [Suspect]
     Dosage: TOTAL DAILY DOSE: 20 ML
     Dates: start: 20030905, end: 20030905
  15. UNSPECIFIED GADOLINIUM CONTRAST AGENT [Suspect]
     Route: 042
     Dates: start: 20050927, end: 20050927
  16. UNSPECIFIED GADOLINIUM CONTRAST AGENT [Suspect]
     Route: 042
     Dates: start: 20051004, end: 20051004
  17. NEPHROVITE [Concomitant]
  18. GLIPIZIDE [Concomitant]
  19. LISINOPRIL [Concomitant]
     Route: 048
  20. LOPRESSOR [Concomitant]
     Route: 048
  21. CALCIUM [Concomitant]
  22. HUMULIN 70/30 [Concomitant]
  23. CARDIZEM [Concomitant]
     Route: 048
  24. ASPIRIN [Concomitant]
     Route: 048
  25. MORPHINE [Concomitant]
  26. PHOSLO [Concomitant]
  27. COUMADIN [Concomitant]
  28. AMIODARONE [Concomitant]
  29. METOPROLOL [Concomitant]
  30. ALBUTEROL SULATE [Concomitant]
  31. PROCRIT [Concomitant]
  32. CEPHALEXIN [Concomitant]
  33. KAYEXALATE [Concomitant]
  34. EPOGEN [Concomitant]
  35. PROCRIT [Concomitant]
  36. ARANESP [Concomitant]
  37. VENOFER [Concomitant]
  38. PREDNISONE [Concomitant]
  39. ZEMPLAR [Concomitant]
  40. LASIX [Concomitant]
  41. HYDRALAZINE HCL [Concomitant]
  42. MUCOMYST [Concomitant]
  43. CISPLATIN [Concomitant]
     Dates: start: 20030101, end: 20030101
  44. DOXORUBICIN HCL [Concomitant]
     Dates: start: 20030101, end: 20030101
  45. HYDRALAZINE HCL [Concomitant]
     Dosage: Q6H
     Route: 042
     Dates: start: 20030904
  46. HYDRALAZINE HCL [Concomitant]
     Route: 048
     Dates: start: 20031101

REACTIONS (27)
  - AREFLEXIA [None]
  - ASTHENIA [None]
  - CONTUSION [None]
  - DRY SKIN [None]
  - DUPUYTREN'S CONTRACTURE OPERATION [None]
  - ERYTHEMA [None]
  - EXTRAVASATION [None]
  - EXTREMITY CONTRACTURE [None]
  - GAIT DISTURBANCE [None]
  - JOINT CONTRACTURE [None]
  - JOINT RANGE OF MOTION DECREASED [None]
  - JOINT STIFFNESS [None]
  - MUSCLE CONTRACTURE [None]
  - NEPHROGENIC SYSTEMIC FIBROSIS [None]
  - OEDEMA [None]
  - OEDEMA PERIPHERAL [None]
  - PAIN IN EXTREMITY [None]
  - PAIN OF SKIN [None]
  - SCAR [None]
  - SKIN DISCOLOURATION [None]
  - SKIN DISORDER [None]
  - SKIN EXFOLIATION [None]
  - SKIN HYPERPIGMENTATION [None]
  - SKIN HYPERTROPHY [None]
  - SKIN INDURATION [None]
  - SKIN TIGHTNESS [None]
  - URTICARIA [None]
